FAERS Safety Report 8562209-5 (Version None)
Quarter: 2012Q3

REPORT INFORMATION
  Report Type: 
  Country: None (occurrence: None)
  Receive Date: 20120802
  Receipt Date: 20120711
  Transmission Date: 20120928
  Serious: No
  Sender: FDA-Public Use
  Company Number: US-AMGEN-USASP2012043081

PATIENT
  Age: 39 Year
  Sex: Male

DRUGS (1)
  1. ENBREL [Suspect]
     Indication: ANKYLOSING SPONDYLITIS
     Dosage: 25 MG, QWK
     Dates: start: 20030101

REACTIONS (8)
  - MUSCULOSKELETAL PAIN [None]
  - FISTULA [None]
  - INJECTION SITE HAEMATOMA [None]
  - ARTHRALGIA [None]
  - BACK PAIN [None]
  - SINUSITIS [None]
  - INJECTION SITE PAIN [None]
  - IRITIS [None]
